FAERS Safety Report 23266784 (Version 1)
Quarter: 2023Q4

REPORT INFORMATION
  Report Type: Spontaneous
  Country: US (occurrence: US)
  Receive Date: 20231206
  Receipt Date: 20231206
  Transmission Date: 20240110
  Serious: No
  Sender: FDA-Public Use
  Company Number: US-SA-SAC20231129001127

PATIENT
  Sex: Female

DRUGS (1)
  1. DUPIXENT [Suspect]
     Active Substance: DUPILUMAB
     Indication: Dermatitis atopic
     Dosage: 300 MG/2ML 1 SYRINGE (300 MG) EVERY OTHER WEEK
     Route: 058
     Dates: start: 20220209

REACTIONS (3)
  - Depressed mood [Unknown]
  - Decreased interest [Unknown]
  - Anhedonia [Unknown]
